FAERS Safety Report 5034745-X (Version None)
Quarter: 2006Q2

REPORT INFORMATION
  Report Type: 
  Country: None (occurrence: None)
  Receive Date: 20060621
  Receipt Date: 20060523
  Transmission Date: 20061013
  Serious: Yes (Hospitalization)
  Sender: FDA-Public Use
  Company Number: ENTC2006-0004

PATIENT
  Age: 82 Year
  Sex: Female

DRUGS (29)
  1. STALEVO 100 [Suspect]
     Indication: PARKINSONISM
     Dosage: SEE IMAGE
     Dates: start: 20050930, end: 20051002
  2. STALEVO 100 [Suspect]
     Indication: PARKINSONISM
     Dosage: SEE IMAGE
     Dates: start: 20051002, end: 20051019
  3. STALEVO 100 [Suspect]
     Indication: PARKINSONISM
     Dosage: SEE IMAGE
     Dates: start: 20051019, end: 20051120
  4. STALEVO 100 [Suspect]
     Indication: PARKINSONISM
     Dosage: SEE IMAGE
     Dates: start: 20051120, end: 20051201
  5. ALOPAM [Concomitant]
  6. VAGIFEM [Concomitant]
  7. AMANTADINE HCL [Concomitant]
  8. PINEX [Concomitant]
  9. NOBLIGAN R [Concomitant]
  10. IBUMETIN [Concomitant]
  11. MOVICOL [Concomitant]
  12. CABASER [Concomitant]
  13. CETIRIN [Concomitant]
  14. SULFAMETHIZOL [Concomitant]
  15. EYEDROPS VISCOSE [Concomitant]
  16. PERILAX [Concomitant]
  17. KALEORID [Concomitant]
  18. DETRUSITOL [Concomitant]
  19. PRIMPERAN TAB [Concomitant]
  20. CONTALGIN [Concomitant]
  21. MAGNYL [Concomitant]
  22. PLAVIX [Concomitant]
  23. KLEXANE INJECTION [Concomitant]
  24. NITROLING [Concomitant]
  25. EFFEXOR [Concomitant]
  26. SELEXID [Concomitant]
  27. TRAMADOL HCL [Concomitant]
  28. CYLIUM [Concomitant]
  29. UNI-KALK SENIOR [Concomitant]

REACTIONS (3)
  - DIARRHOEA [None]
  - HYPOKALAEMIA [None]
  - HYPONATRAEMIA [None]
